FAERS Safety Report 8103208-7 (Version None)
Quarter: 2012Q1

REPORT INFORMATION
  Report Type: 
  Country: None (occurrence: None)
  Receive Date: 20120201
  Receipt Date: 20120120
  Transmission Date: 20120608
  Serious: Yes (Hospitalization)
  Sender: FDA-Public Use
  Company Number: US-JNJFOC-20120109885

PATIENT
  Age: 46 Year
  Sex: Male

DRUGS (2)
  1. ACETAMINOPHEN [Suspect]
     Indication: SUICIDE ATTEMPT
     Route: 065
  2. ACETAMINOPHEN [Suspect]
     Route: 065

REACTIONS (1)
  - INTENTIONAL OVERDOSE [None]
